FAERS Safety Report 8970754 (Version 3)
Quarter: 2013Q1

REPORT INFORMATION
  Report Type: Report from Study
  Country: US (occurrence: US)
  Receive Date: 20121218
  Receipt Date: 20130206
  Transmission Date: 20140127
  Serious: No
  Sender: FDA-Public Use
  Company Number: US-VERTEX PHARMACEUTICALS INC.-2012-026274

PATIENT
  Age: 38 Year
  Sex: Male
  Weight: 84 kg

DRUGS (3)
  1. VX-950 (TELAPREVIR) [Suspect]
     Indication: HEPATITIS C
     Dosage: 750 MG, TID
     Route: 048
     Dates: start: 20121214
  2. RIBAPAK [Suspect]
     Indication: HEPATITIS C
     Dosage: 600 MG AM, 400 MG PM, QD
     Route: 048
     Dates: start: 20121214
  3. PEGASYS [Suspect]
     Indication: HEPATITIS C
     Dosage: 180 ?G, QW
     Route: 058
     Dates: start: 20121214

REACTIONS (8)
  - Depression [Unknown]
  - Pyrexia [Unknown]
  - Nasal congestion [Unknown]
  - Weight decreased [Unknown]
  - Fatigue [Unknown]
  - Rash generalised [Unknown]
  - Vomiting [Unknown]
  - Nausea [Unknown]
